FAERS Safety Report 5306437-0 (Version None)
Quarter: 2007Q2

REPORT INFORMATION
  Report Type: 
  Country: None (occurrence: None)
  Receive Date: 20070424
  Receipt Date: 20070419
  Transmission Date: 20071010
  Serious: Yes (Hospitalization, Other)
  Sender: FDA-Public Use
  Company Number: US-MERCK-0608USA02227

PATIENT
  Age: 70 Year
  Sex: Female

DRUGS (3)
  1. FOSAMAX [Suspect]
     Indication: OSTEOPOROSIS
     Route: 048
     Dates: start: 19971201, end: 20020501
  2. FOSAMAX [Suspect]
     Route: 048
     Dates: start: 20020501, end: 20050601
  3. FOSAMAX PLUS D [Suspect]
     Indication: OSTEOPOROSIS
     Route: 048
     Dates: start: 20050601, end: 20060101

REACTIONS (9)
  - ARTHROPATHY [None]
  - CATARACT [None]
  - CHEST X-RAY ABNORMAL [None]
  - CYST [None]
  - DEPRESSION [None]
  - INSOMNIA [None]
  - MUSCULOSKELETAL PAIN [None]
  - OSTEONECROSIS [None]
  - SINUSITIS [None]
